FAERS Safety Report 13690337 (Version 1)
Quarter: 2017Q2

REPORT INFORMATION
  Report Type: Spontaneous
  Country: None (occurrence: US)
  Receive Date: 20170624
  Receipt Date: 20170624
  Transmission Date: 20170830
  Serious: Yes (Death, Hospitalization)
  Sender: FDA-Public Use
  Company Number: None

PATIENT
  Age: 75 Year
  Sex: Female
  Weight: 81 kg

DRUGS (3)
  1. CARBOPLATIN. [Suspect]
     Active Substance: CARBOPLATIN
     Dates: end: 20170505
  2. TAXOL [Suspect]
     Active Substance: PACLITAXEL
     Dates: end: 20170505
  3. METFORMIN HYDROCHLORIDE. [Suspect]
     Active Substance: METFORMIN HYDROCHLORIDE
     Dates: end: 20170524

REACTIONS (10)
  - Respiratory failure [None]
  - Acidosis [None]
  - Bradycardia [None]
  - Cardiac arrest [None]
  - Hydronephrosis [None]
  - Hypoxia [None]
  - Blood creatine increased [None]
  - Renal failure [None]
  - Septic shock [None]
  - Rhinorrhoea [None]

NARRATIVE: CASE EVENT DATE: 20170616
